FAERS Safety Report 6420305-2 (Version None)
Quarter: 2009Q4

REPORT INFORMATION
  Report Type: 
  Country: None (occurrence: None)
  Receive Date: 20091029
  Receipt Date: 20091020
  Transmission Date: 20100525
  Serious: Yes (Hospitalization, Other)
  Sender: FDA-Public Use
  Company Number: DE-ABBOTT-09P-062-0604517-00

PATIENT
  Sex: Male
  Weight: 55 kg

DRUGS (4)
  1. KALETRA [Suspect]
     Indication: HIV INFECTION CDC CATEGORY C3
     Dosage: 2X2
     Route: 048
     Dates: start: 20080415
  2. TRUVADA [Concomitant]
     Indication: HIV INFECTION
     Dosage: 1X1
     Route: 048
     Dates: start: 20080415
  3. COTRIM 960 [Concomitant]
     Indication: PROPHYLAXIS
     Dosage: HALF A TABLET PER DAY
     Route: 048
     Dates: start: 20080408
  4. OMEPRAZOLE [Concomitant]
     Indication: DRUG USE FOR UNKNOWN INDICATION

REACTIONS (25)
  - ARTERIOSCLEROSIS [None]
  - BRONCHITIS CHRONIC [None]
  - C-REACTIVE PROTEIN INCREASED [None]
  - CACHEXIA [None]
  - CLOSTRIDIUM DIFFICILE COLITIS [None]
  - COORDINATION ABNORMAL [None]
  - CYTOMEGALOVIRUS TEST POSITIVE [None]
  - DIARRHOEA [None]
  - DISTURBANCE IN ATTENTION [None]
  - DYSPNOEA AT REST [None]
  - ENCEPHALOPATHY [None]
  - GENERAL PHYSICAL HEALTH DETERIORATION [None]
  - HYPOVENTILATION [None]
  - HYPOXIA [None]
  - INFLAMMATION [None]
  - LEGIONELLA INFECTION [None]
  - LEUKOCYTOSIS [None]
  - LUNG INFILTRATION [None]
  - PAIN IN EXTREMITY [None]
  - PERFORMANCE STATUS DECREASED [None]
  - PNEUMONIA [None]
  - SEPSIS [None]
  - SKIN TURGOR DECREASED [None]
  - STRESS [None]
  - URINARY TRACT INFECTION PSEUDOMONAL [None]
